FAERS Safety Report 7070344-6 (Version None)
Quarter: 2010Q4

REPORT INFORMATION
  Report Type: 
  Country: None (occurrence: None)
  Receive Date: 20101028
  Receipt Date: 20101019
  Transmission Date: 20110411
  Serious: No
  Sender: FDA-Public Use
  Company Number: US-WYE-H18245410

PATIENT
  Sex: Male
  Weight: 122.58 kg

DRUGS (13)
  1. PROTONIX [Suspect]
     Indication: GASTROOESOPHAGEAL REFLUX DISEASE
     Route: 048
     Dates: start: 20000101
  2. AMBIEN [Concomitant]
     Indication: DEPRESSION
     Dosage: 10 MG, FREQUENCY UNKNOWN
  3. AMBIEN [Concomitant]
     Indication: ANXIETY
  4. AMBIEN [Concomitant]
     Indication: SOCIAL PHOBIA
  5. THORAZINE [Concomitant]
     Indication: DEPRESSION
     Dosage: 50 MG, FREQUENCY UNKNOWN
  6. THORAZINE [Concomitant]
     Indication: ANXIETY
  7. THORAZINE [Concomitant]
     Indication: SOCIAL PHOBIA
  8. ZOLOFT [Concomitant]
     Indication: DEPRESSION
     Dosage: 200 MG, FREQUENCY UNKNOWN
  9. ZOLOFT [Concomitant]
     Indication: ANXIETY
  10. ZOLOFT [Concomitant]
     Indication: SOCIAL PHOBIA
  11. VALIUM [Concomitant]
     Indication: DEPRESSION
     Dosage: 10 MG, FREQUENCY UNKNOWN
  12. VALIUM [Concomitant]
     Indication: ANXIETY
  13. VALIUM [Concomitant]
     Indication: SOCIAL PHOBIA

REACTIONS (2)
  - DIABETES MELLITUS [None]
  - DRUG SCREEN FALSE POSITIVE [None]
